FAERS Safety Report 13183455 (Version 4)
Quarter: 2017Q2

REPORT INFORMATION
  Report Type: Report from Study
  Country: US (occurrence: US)
  Receive Date: 20170203
  Receipt Date: 20170606
  Transmission Date: 20170830
  Serious: Yes (Hospitalization)
  Sender: FDA-Public Use
  Company Number: US-ROCHE-1887075

PATIENT
  Age: 70 Year
  Sex: Male
  Weight: 74.8 kg

DRUGS (13)
  1. BEVACIZUMAB [Suspect]
     Active Substance: BEVACIZUMAB
     Route: 042
     Dates: start: 20170116
  2. VITAMIN B6 [Concomitant]
     Active Substance: PYRIDOXINE HYDROCHLORIDE
  3. REGLAN [Concomitant]
     Active Substance: METOCLOPRAMIDE HYDROCHLORIDE
  4. LEUCOVORIN. [Suspect]
     Active Substance: LEUCOVORIN
     Indication: COLON CANCER METASTATIC
     Route: 042
     Dates: start: 20161128, end: 20170109
  5. CLARITINE [Concomitant]
     Active Substance: LORATADINE
  6. BEVACIZUMAB [Suspect]
     Active Substance: BEVACIZUMAB
     Indication: COLON CANCER METASTATIC
     Route: 042
     Dates: start: 20161128, end: 20170109
  7. 5-FU [Suspect]
     Active Substance: FLUOROURACIL
     Route: 042
     Dates: start: 20170116
  8. LEUCOVORIN. [Suspect]
     Active Substance: LEUCOVORIN
     Route: 042
     Dates: start: 20170116
  9. 5-FU [Suspect]
     Active Substance: FLUOROURACIL
     Indication: COLON CANCER METASTATIC
     Route: 042
     Dates: start: 20161128, end: 20170109
  10. GS-5745 [Suspect]
     Active Substance: INVESTIGATIONAL PRODUCT
     Indication: COLON CANCER METASTATIC
     Route: 042
     Dates: start: 20161128, end: 20170109
  11. GS-5745 [Suspect]
     Active Substance: INVESTIGATIONAL PRODUCT
     Route: 042
     Dates: start: 20170116
  12. OXALIPLATIN. [Suspect]
     Active Substance: OXALIPLATIN
     Route: 042
     Dates: start: 20170116
  13. OXALIPLATIN. [Suspect]
     Active Substance: OXALIPLATIN
     Indication: COLON CANCER METASTATIC
     Route: 042
     Dates: start: 20161128, end: 20170109

REACTIONS (1)
  - Acute coronary syndrome [Recovered/Resolved]

NARRATIVE: CASE EVENT DATE: 20170122
